FAERS Safety Report 25944677 (Version 1)
Quarter: 2025Q4

REPORT INFORMATION
  Report Type: Report from Study
  Country: US (occurrence: US)
  Receive Date: 20251021
  Receipt Date: 20251021
  Transmission Date: 20260117
  Serious: Yes (Other)
  Sender: ALEXION PHARMACEUTICALS
  Company Number: US-ASTRAZENECA-A202312469

PATIENT
  Age: 80 Year
  Sex: Female

DRUGS (3)
  1. STRENSIQ [Suspect]
     Active Substance: ASFOTASE ALFA
     Indication: Phosphorus metabolism disorder
     Dosage: 2 MILLIGRAM/KILOGRAM, TIW
     Route: 065
  2. STRENSIQ [Suspect]
     Active Substance: ASFOTASE ALFA
     Dosage: UNK
     Route: 065
  3. STRENSIQ [Suspect]
     Active Substance: ASFOTASE ALFA
     Dosage: UNK
     Route: 065

REACTIONS (20)
  - Fall [Unknown]
  - Arthritis bacterial [Unknown]
  - Fibromyalgia [Unknown]
  - Arthralgia [Unknown]
  - Back pain [Unknown]
  - Muscle spasms [Unknown]
  - Musculoskeletal stiffness [Unknown]
  - Tenderness [Unknown]
  - Malaise [Unknown]
  - Myalgia [Unknown]
  - Dyspnoea exertional [Unknown]
  - Illness [Unknown]
  - Pain [Unknown]
  - Insomnia [Unknown]
  - Social fear [Unknown]
  - Stress [Unknown]
  - Muscle discomfort [Unknown]
  - Osteoarthritis [Unknown]
  - Cellulitis [Unknown]
  - Joint injury [Unknown]
